FAERS Safety Report 14390091 (Version 2)
Quarter: 2018Q1

REPORT INFORMATION
  Report Type: Spontaneous
  Country: US (occurrence: US)
  Receive Date: 20180115
  Receipt Date: 20180308
  Transmission Date: 20180509
  Serious: Yes (Hospitalization)
  Sender: FDA-Public Use
  Company Number: US-ASTRAZENECA-2018SE03729

PATIENT
  Age: 33342 Day
  Sex: Female
  Weight: 46.3 kg

DRUGS (1)
  1. TUDORZA PRESSAIR [Suspect]
     Active Substance: ACLIDINIUM BROMIDE
     Indication: CHRONIC OBSTRUCTIVE PULMONARY DISEASE
     Dosage: 400 MCG ONE INHALATION TWICE DAILY
     Route: 055

REACTIONS (6)
  - Cardiac failure [Unknown]
  - Carbon dioxide abnormal [Not Recovered/Not Resolved]
  - Drug dose omission [Recovered/Resolved]
  - Cough [Not Recovered/Not Resolved]
  - Device issue [Unknown]
  - Condition aggravated [Unknown]

NARRATIVE: CASE EVENT DATE: 20171009
